FAERS Safety Report 8854098 (Version 2)
Quarter: 2012Q4

REPORT INFORMATION
  Report Type: 
  Country: US (occurrence: None)
  Receive Date: 20121023
  Receipt Date: 20121023
  Transmission Date: 20130627
  Serious: Yes (Hospitalization)
  Sender: FDA-Public Use
  Company Number: None

PATIENT
  Age: 50 Year
  Sex: Female
  Weight: 74.84 kg

DRUGS (1)
  1. METHYLPREDNISOLONE [Suspect]

REACTIONS (8)
  - Blindness [None]
  - Nausea [None]
  - Weight decreased [None]
  - Asthenia [None]
  - Pain [None]
  - Tooth fracture [None]
  - Body temperature increased [None]
  - Movement disorder [None]
